FAERS Safety Report 4748980-9 (Version None)
Quarter: 2005Q3

REPORT INFORMATION
  Report Type: 
  Country: None (occurrence: None)
  Receive Date: 20050819
  Receipt Date: 20050407
  Transmission Date: 20060218
  Serious: Yes (Death)
  Sender: FDA-Public Use
  Company Number: US-MERCK-0504USA01000

PATIENT
  Age: 55 Year
  Sex: Male
  Weight: 159 kg

DRUGS (11)
  1. VIOXX [Suspect]
     Indication: OSTEOARTHRITIS
     Route: 048
  2. VIOXX [Suspect]
     Route: 048
     Dates: start: 20030408, end: 20040401
  3. COREG [Concomitant]
     Route: 065
     Dates: start: 20040328
  4. COREG [Concomitant]
     Route: 065
     Dates: start: 20040325
  5. TRICOR [Concomitant]
     Indication: BLOOD CHOLESTEROL INCREASED
     Route: 065
     Dates: start: 20040304
  6. DIAZEPAM [Concomitant]
     Route: 065
  7. ZESTRIL [Concomitant]
     Indication: HYPERTENSION
     Route: 065
     Dates: start: 19930101, end: 20040101
  8. GLUCOPHAGE [Concomitant]
     Indication: DIABETES MELLITUS
     Route: 065
  9. GLUCOTROL [Concomitant]
     Indication: DIABETES MELLITUS
     Route: 065
  10. DEPO-MEDROL [Concomitant]
     Route: 065
     Dates: start: 20040401
  11. NORVASC [Concomitant]
     Route: 065
     Dates: start: 19930101, end: 20040205

REACTIONS (11)
  - BASAL CELL CARCINOMA [None]
  - BRONCHITIS ACUTE [None]
  - CARDIAC ARREST [None]
  - CARDIAC FAILURE CONGESTIVE [None]
  - CARDIOMYOPATHY [None]
  - EJECTION FRACTION DECREASED [None]
  - HYPERLIPIDAEMIA [None]
  - HYPERTENSION [None]
  - MYOCARDIAL INFARCTION [None]
  - ROTATOR CUFF SYNDROME [None]
  - VENTRICULAR HYPERTROPHY [None]
